FAERS Safety Report 5948535-4 (Version None)
Quarter: 2008Q4

REPORT INFORMATION
  Report Type: 
  Country: None (occurrence: None)
  Receive Date: 20081111
  Receipt Date: 20081105
  Transmission Date: 20090506
  Serious: Yes (Hospitalization)
  Sender: FDA-Public Use
  Company Number: JP-AVENTIS-200813431JP

PATIENT
  Age: 61 Year
  Sex: Female

DRUGS (8)
  1. FUROSEMIDE [Suspect]
  2. CORTICOSTEROIDS [Concomitant]
  3. PREDNISOLONE [Concomitant]
  4. CIPROFLOXACIN [Concomitant]
  5. CEFTRIAXONE [Concomitant]
  6. MEROPENEM [Concomitant]
  7. GAMMAGLOBULIN                      /00025201/ [Concomitant]
  8. UNKNOWN DRUG [Concomitant]

REACTIONS (2)
  - ACUTE GENERALISED EXANTHEMATOUS PUSTULOSIS [None]
  - DRUG RASH WITH EOSINOPHILIA AND SYSTEMIC SYMPTOMS [None]
